FAERS Safety Report 10178205 (Version 1)
Quarter: 2014Q2

REPORT INFORMATION
  Report Type: Spontaneous
  Country: US (occurrence: None)
  Receive Date: 20140516
  Receipt Date: 20140516
  Transmission Date: 20141212
  Serious: Yes (Death)
  Sender: FDA-Public Use
  Company Number: None

PATIENT
  Age: 54 Year
  Sex: Male
  Weight: 115 kg

DRUGS (11)
  1. THYMOGLOBULIN [Suspect]
     Indication: RENAL TRANSPLANT
     Route: 042
     Dates: start: 20140513, end: 20140514
  2. THYMOGLOBULIN [Suspect]
     Indication: IMMUNOSUPPRESSANT DRUG THERAPY
     Route: 042
     Dates: start: 20140513, end: 20140514
  3. ASPIRIN [Concomitant]
  4. CALCIUM ACETATE [Concomitant]
  5. CINACALCET [Concomitant]
  6. GABAPENTIN [Concomitant]
  7. OMEPREZOLE [Concomitant]
  8. SIMVASTATIN [Concomitant]
  9. CLONAZEPAM [Concomitant]
  10. HYDRALAZINE [Concomitant]
  11. LABETALOL [Concomitant]

REACTIONS (4)
  - Hypotension [None]
  - Cardio-respiratory arrest [None]
  - Ventricular fibrillation [None]
  - Ventricular tachycardia [None]
